FAERS Safety Report 21098109 (Version 2)
Quarter: 2022Q4

REPORT INFORMATION
  Report Type: Report from Study
  Country: CN (occurrence: CN)
  Receive Date: 20220719
  Receipt Date: 20221209
  Transmission Date: 20230112
  Serious: Yes (Life-Threatening, Hospitalization)
  Sender: FDA-Public Use
  Company Number: CN-BoehringerIngelheim-2022-BI-170320

PATIENT
  Age: 85 Year
  Sex: Male
  Weight: 89 kg

DRUGS (4)
  1. TENECTEPLASE [Suspect]
     Active Substance: TENECTEPLASE
     Indication: Ischaemic stroke
     Route: 042
     Dates: start: 20220426, end: 20220426
  2. METFORMIN HYDROCHLORIDE [Concomitant]
     Active Substance: METFORMIN HYDROCHLORIDE
     Indication: Diabetes mellitus
     Dates: start: 2020
  3. KALLIDINOGENASE [Concomitant]
     Active Substance: KALLIDINOGENASE
     Indication: Hypertension
     Dosage: ENTERIC COATED TABLET
     Route: 048
     Dates: start: 2020
  4. ATORVASTATIN CALCIUM [Concomitant]
     Active Substance: ATORVASTATIN CALCIUM
     Indication: Lipids abnormal
     Route: 048
     Dates: start: 20220426

REACTIONS (1)
  - Condition aggravated [Recovered/Resolved]

NARRATIVE: CASE EVENT DATE: 20220426
